FAERS Safety Report 5569205-0 (Version None)
Quarter: 2007Q4

REPORT INFORMATION
  Report Type: 
  Country: None (occurrence: None)
  Receive Date: 20071220
  Receipt Date: 20070905
  Transmission Date: 20080405
  Serious: No
  Sender: FDA-Public Use
  Company Number: A0678855A

PATIENT
  Age: 52 Year
  Sex: Male

DRUGS (2)
  1. AVODART [Suspect]
     Indication: BENIGN PROSTATIC HYPERPLASIA
     Dosage: .5MG PER DAY
     Route: 048
     Dates: start: 20070805, end: 20070902
  2. ADVIL LIQUI-GELS [Concomitant]

REACTIONS (2)
  - ABDOMINAL PAIN UPPER [None]
  - PRURITUS [None]
